FAERS Safety Report 9235791 (Version 1)
Quarter: 2013Q1

REPORT INFORMATION
  Report Type: Spontaneous
  Country: US (occurrence: None)
  Receive Date: 20121031
  Receipt Date: 20121031
  Transmission Date: 20140127
  Serious: No
  Sender: FDA-Public Use
  Company Number: PHEH2012US013631

PATIENT
  Age: 34 Year
  Sex: Female

DRUGS (4)
  1. GILENYA [Suspect]
     Indication: MULTIPLE SCLEROSIS
     Route: 048
     Dates: start: 201205
  2. NAPROXEN (NAPROXEN) [Concomitant]
  3. HYDROCODONE W/ACETAMINOPHEN (HYDROCODONE BITARTRATE, PARACETAMOL) [Concomitant]
  4. PREVACID (LANSOPRAZOLE) [Concomitant]

REACTIONS (1)
  - Acne [None]
